FAERS Safety Report 14471305 (Version 1)
Quarter: 2018Q1

REPORT INFORMATION
  Report Type: Spontaneous
  Country: US (occurrence: US)
  Receive Date: 20180130
  Receipt Date: 20180130
  Transmission Date: 20180509
  Serious: Yes (Other)
  Sender: FDA-Public Use
  Company Number: None

PATIENT
  Age: 22 Year
  Sex: Female
  Weight: 63 kg

DRUGS (2)
  1. BIRTH CONTROL (BLISOVI FE) [Concomitant]
  2. PAROXETINE ER 12.5MG TAB [Suspect]
     Active Substance: PAROXETINE
     Indication: SOCIAL ANXIETY DISORDER
     Dosage: ?          QUANTITY:1 TABLET(S);?
     Route: 048

REACTIONS (5)
  - Dizziness [None]
  - Nausea [None]
  - Drug dose omission [None]
  - Withdrawal syndrome [None]
  - Paraesthesia [None]

NARRATIVE: CASE EVENT DATE: 20140701
